FAERS Safety Report 20228357 (Version 1)
Quarter: 2021Q4

REPORT INFORMATION
  Report Type: Spontaneous
  Country: DE (occurrence: DE)
  Receive Date: 20211224
  Receipt Date: 20211224
  Transmission Date: 20220303
  Serious: Yes (Hospitalization)
  Sender: FDA-Public Use
  Company Number: DE-ADRED-07187-01

PATIENT
  Age: 71 Year
  Sex: Male

DRUGS (17)
  1. PREGABALIN [Suspect]
     Active Substance: PREGABALIN
     Dosage: 1-0-1-0
     Route: 048
  2. VENLAFAXINE HCL [Suspect]
     Active Substance: VENLAFAXINE HYDROCHLORIDE
     Dosage: 1-0-0-0
     Route: 048
  3. TIOTROPIUM BROMIDE [Suspect]
     Active Substance: TIOTROPIUM BROMIDE
     Dosage: 2-0-0-0
  4. HYDROMORPHONE [Suspect]
     Active Substance: HYDROMORPHONE
     Dosage: UNK
     Route: 058
  5. LORAZEPAM [Concomitant]
     Active Substance: LORAZEPAM
     Dosage: 1 MG, IF NECESSARY
     Route: 060
  6. SYMBICORT [Concomitant]
     Active Substance: BUDESONIDE\FORMOTEROL FUMARATE DIHYDRATE
     Dosage: 160/4.5 UG, 2-0-2-0
     Route: 055
  7. ROFLUMILAST [Concomitant]
     Active Substance: ROFLUMILAST
     Dosage: 1-0-0-0
     Route: 048
  8. ASPIRIN [Concomitant]
     Active Substance: ASPIRIN
     Dosage: 0-1-0-0
     Route: 048
  9. COLECALCIFEROL D3 [Concomitant]
     Dosage: 20000 IU, WEEKLY
     Route: 058
  10. FUROSEMIDE [Concomitant]
     Active Substance: FUROSEMIDE
     Dosage: 1-0-0-0
     Route: 048
  11. MIRTAZAPINE [Concomitant]
     Active Substance: MIRTAZAPINE
     Dosage: 0-0-1-0
     Route: 048
  12. TROSPIUM [Concomitant]
     Active Substance: TROSPIUM
     Dosage: 0-0-1-0
     Route: 048
  13. PANTOPRAZOLE [Concomitant]
     Active Substance: PANTOPRAZOLE
     Dosage: 0-0-1-0
     Route: 048
  14. METAMIZOLE [Concomitant]
     Active Substance: METAMIZOLE
     Dosage: 1-1-1-1
     Route: 048
  15. NALOXEGOL [Concomitant]
     Active Substance: NALOXEGOL
     Dosage: 1-0-0-0
     Route: 048
  16. ALENDRONATE SODIUM [Concomitant]
     Active Substance: ALENDRONATE SODIUM
     Dosage: 70 MG, WEEKLY
     Route: 058
  17. LEVETIRACETAM [Concomitant]
     Active Substance: LEVETIRACETAM
     Dosage: 3-0-2-0
     Route: 048

REACTIONS (2)
  - Constipation [Recovering/Resolving]
  - Flatulence [Recovering/Resolving]
